FAERS Safety Report 8224753-X (Version None)
Quarter: 2012Q1

REPORT INFORMATION
  Report Type: 
  Country: None (occurrence: None)
  Receive Date: 20120320
  Receipt Date: 20120320
  Transmission Date: 20120608
  Serious: Yes (Other)
  Sender: FDA-Public Use
  Company Number: None

PATIENT
  Age: 59 Year
  Sex: Male

DRUGS (9)
  1. FAMOTIDINE [Concomitant]
  2. HYDROCODONE BITARTRATE AND ACETAMINOPHEN [Concomitant]
  3. ELIPHOS [Concomitant]
  4. FAMOTIDINE [Concomitant]
  5. GLIPIZIDE [Concomitant]
  6. NPH INSULIN [Concomitant]
  7. AMITRIPTYLINE DOCUSATE [Concomitant]
  8. REVLIMID [Suspect]
     Indication: MULTIPLE MYELOMA
     Dosage: REVLIMID 5 MG DAILY ORALLY
     Route: 048
     Dates: start: 20120101
  9. REGULAR INSULIN [Concomitant]

REACTIONS (4)
  - DIALYSIS [None]
  - THROMBOCYTOPENIA [None]
  - RENAL FAILURE ACUTE [None]
  - HYPOGLYCAEMIA [None]
